FAERS Safety Report 10448975 (Version 3)
Quarter: 2014Q4

REPORT INFORMATION
  Report Type: Spontaneous
  Country: PT (occurrence: PT)
  Receive Date: 20140912
  Receipt Date: 20141014
  Transmission Date: 20150528
  Serious: Yes (Death, Other)
  Sender: FDA-Public Use
  Company Number: PT-BRISTOL-MYERS SQUIBB COMPANY-20836946

PATIENT
  Age: 81 Year
  Sex: Male

DRUGS (1)
  1. YERVOY [Suspect]
     Active Substance: IPILIMUMAB
     Indication: MALIGNANT MELANOMA
     Dosage: INJECTION,4DOSES

REACTIONS (4)
  - Colitis [Unknown]
  - Malignant neoplasm progression [Fatal]
  - Somnolence [Unknown]
  - Infected neoplasm [Unknown]

NARRATIVE: CASE EVENT DATE: 201408
